FAERS Safety Report 5760986-X (Version None)
Quarter: 2008Q2

REPORT INFORMATION
  Report Type: 
  Country: None (occurrence: None)
  Receive Date: 20080606
  Receipt Date: 20080529
  Transmission Date: 20081010
  Serious: Yes (Hospitalization, Disabling)
  Sender: FDA-Public Use
  Company Number: BE-BAYER-BE-2007-029175

PATIENT
  Age: 27 Year
  Sex: Female

DRUGS (1)
  1. BETAFERON [Suspect]
     Indication: MULTIPLE SCLEROSIS
     Route: 058
     Dates: start: 20060922, end: 20070801

REACTIONS (4)
  - DRUG HYPERSENSITIVITY [None]
  - NECROTISING PANNICULITIS [None]
  - PYREXIA [None]
  - STAPHYLOCOCCAL INFECTION [None]
